FAERS Safety Report 23342867 (Version 2)
Quarter: 2024Q1

REPORT INFORMATION
  Report Type: Spontaneous
  Country: GB (occurrence: GB)
  Receive Date: 20231227
  Receipt Date: 20240103
  Transmission Date: 20240409
  Serious: Yes (Hospitalization, Other)
  Sender: FDA-Public Use
  Company Number: GB-MYLANLABS-2023M1130451

PATIENT
  Age: 47 Year
  Sex: Female

DRUGS (1)
  1. CLOZARIL [Suspect]
     Active Substance: CLOZAPINE
     Indication: Schizophrenia
     Dosage: 200 MILLIGRAM, QD
     Route: 048
     Dates: start: 20030430, end: 20231205

REACTIONS (10)
  - Mental impairment [Unknown]
  - White blood cell count decreased [Recovered/Resolved]
  - Neutrophil count decreased [Recovered/Resolved]
  - Malaise [Recovering/Resolving]
  - COVID-19 [Unknown]
  - Eosinophil count decreased [Recovered/Resolved]
  - Haemoglobin decreased [Recovered/Resolved]
  - Off label use [Unknown]
  - Weight increased [Unknown]
  - Sedation complication [Unknown]

NARRATIVE: CASE EVENT DATE: 20231107
